FAERS Safety Report 10026021 (Version 2)
Quarter: 2014Q2

REPORT INFORMATION
  Report Type: Spontaneous
  Country: CN (occurrence: None)
  Receive Date: 20140318
  Receipt Date: 20140519
  Transmission Date: 20141212
  Serious: Yes (Other)
  Sender: FDA-Public Use
  Company Number: VAL_03036_2014

PATIENT
  Sex: 0

DRUGS (1)
  1. ROCALTROL [Suspect]
     Indication: PRODUCT USED FOR UNKNOWN INDICATION
     Dosage: ADJUSTED BASED ON BLOOD CALCIUM LEVELS

REACTIONS (1)
  - Renal osteodystrophy [None]
